FAERS Safety Report 5796731-1 (Version None)
Quarter: 2008Q3

REPORT INFORMATION
  Report Type: 
  Country: None (occurrence: None)
  Receive Date: 20080701
  Receipt Date: 20080624
  Transmission Date: 20090109
  Serious: Yes (Other)
  Sender: FDA-Public Use
  Company Number: US-MERCK-0805USA01944

PATIENT
  Age: 73 Year
  Sex: Female

DRUGS (8)
  1. FOSAMAX [Suspect]
     Indication: OSTEOPOROSIS
     Route: 048
     Dates: start: 19980101, end: 20080501
  2. AMIODARONE [Concomitant]
     Route: 065
  3. ATENOLOL [Concomitant]
     Route: 065
  4. LASIX [Concomitant]
     Route: 065
  5. ARIMIDEX [Concomitant]
     Route: 065
  6. NORVASC [Concomitant]
     Route: 065
  7. ALTACE [Concomitant]
     Route: 065
  8. MEGESTROL ACETATE [Concomitant]
     Route: 065

REACTIONS (2)
  - ATRIAL FIBRILLATION [None]
  - BREAST CANCER [None]
